FAERS Safety Report 10053451 (Version 2)
Quarter: 2014Q2

REPORT INFORMATION
  Report Type: Report from Study
  Country: FR (occurrence: FR)
  Receive Date: 20140402
  Receipt Date: 20140521
  Transmission Date: 20141212
  Serious: Yes (Hospitalization)
  Sender: FDA-Public Use
  Company Number: PHHY2014FR038735

PATIENT
  Age: 27 Year
  Sex: Male
  Weight: 92 kg

DRUGS (5)
  1. ICL670A [Suspect]
     Indication: IRON OVERLOAD
     Dates: start: 20080509, end: 201104
  2. HYDREA [Concomitant]
     Dosage: 1000 MG, UNK
     Dates: start: 20120827
  3. SPECIAFOLDINE [Concomitant]
     Dosage: 10 MG, UNK
     Dates: start: 2003
  4. FERRIPROX [Concomitant]
     Indication: IRON OVERLOAD
     Dosage: 1000 MG, 6 DF
     Dates: start: 201109
  5. TRIATEC [Concomitant]
     Indication: HYPERTENSION
     Dosage: 10 MG, UNK

REACTIONS (1)
  - Tenosynovitis [Unknown]
